FAERS Safety Report 7148144-8 (Version None)
Quarter: 2010Q4

REPORT INFORMATION
  Report Type: 
  Country: None (occurrence: None)
  Receive Date: 20101209
  Receipt Date: 20101117
  Transmission Date: 20110411
  Serious: No
  Sender: FDA-Public Use
  Company Number: US-PFIZER INC-2010152076

PATIENT
  Sex: Female

DRUGS (1)
  1. NORPLANT SYSTEM [Suspect]
     Dosage: UNK
     Route: 058

REACTIONS (3)
  - EXPIRED DRUG ADMINISTERED [None]
  - PREGNANCY [None]
  - SMEAR CERVIX ABNORMAL [None]
